FAERS Safety Report 7964381-4 (Version None)
Quarter: 2011Q4

REPORT INFORMATION
  Report Type: 
  Country: None (occurrence: None)
  Receive Date: 20111208
  Receipt Date: 20111205
  Transmission Date: 20120403
  Serious: Yes (Other)
  Sender: FDA-Public Use
  Company Number: IT-PFIZER INC-2011298332

PATIENT
  Age: 64 Year
  Sex: Male

DRUGS (4)
  1. MEDROL [Suspect]
     Indication: RHEUMATOID ARTHRITIS
     Dosage: 4 MG, 1X/DAY
     Route: 048
     Dates: start: 20080910
  2. OMEPRAZOLE [Concomitant]
     Dosage: 20 MG, 1X/DAY
     Route: 048
     Dates: start: 20060303
  3. MESULID [Concomitant]
     Dosage: 100 MG, AS NEEDED
     Route: 048
     Dates: start: 20081008
  4. HUMIRA [Suspect]
     Indication: RHEUMATOID ARTHRITIS
     Dosage: 40 MG, CYCLIC
     Route: 058
     Dates: start: 20081222, end: 20110206

REACTIONS (1)
  - ANURIA [None]
